FAERS Safety Report 8070155-9 (Version None)
Quarter: 2012Q1

REPORT INFORMATION
  Report Type: 
  Country: None (occurrence: None)
  Receive Date: 20120125
  Receipt Date: 20120120
  Transmission Date: 20120608
  Serious: Yes (Death)
  Sender: FDA-Public Use
  Company Number: DE-ROCHE-1022680

PATIENT

DRUGS (1)
  1. XELODA [Suspect]
     Indication: METASTATIC GASTRIC CANCER
     Route: 048
     Dates: start: 20101008

REACTIONS (3)
  - OBSTRUCTION GASTRIC [None]
  - NEOPLASM MALIGNANT [None]
  - VOMITING [None]
